FAERS Safety Report 23144475 (Version 2)
Quarter: 2023Q4

REPORT INFORMATION
  Report Type: Report from Study
  Country: US (occurrence: None)
  Receive Date: 20231103
  Receipt Date: 20231222
  Transmission Date: 20240109
  Serious: Yes (Life-Threatening, Other)
  Sender: FDA-Public Use
  Company Number: 2023A247439

PATIENT
  Sex: Female

DRUGS (2)
  1. FASENRA [Suspect]
     Active Substance: BENRALIZUMAB
     Dosage: INJECT 30MG SUBCUTANEOUSLY EVERY EIGHT WEEKS
     Route: 058
  2. SYMBICORT [Suspect]
     Active Substance: BUDESONIDE\FORMOTEROL FUMARATE DIHYDRATE
     Dosage: UNKNOWN UNKNOWN
     Route: 055

REACTIONS (11)
  - Chronic obstructive pulmonary disease [Unknown]
  - Emphysema [Unknown]
  - Asthma [Unknown]
  - Dyspnoea [Unknown]
  - Abdominal discomfort [Unknown]
  - Abdominal distension [Unknown]
  - Uterine pain [Unknown]
  - Gastric cyst [Unknown]
  - Pain [Unknown]
  - Inflammation [Unknown]
  - Product use issue [Unknown]
